FAERS Safety Report 5486343-1 (Version None)
Quarter: 2007Q4

REPORT INFORMATION
  Report Type: 
  Country: None (occurrence: None)
  Receive Date: 20071016
  Receipt Date: 20071005
  Transmission Date: 20080405
  Serious: Yes (Death)
  Sender: FDA-Public Use
  Company Number: HQWYE929030AUG07

PATIENT
  Age: 45 Year
  Sex: Male

DRUGS (11)
  1. EFFEXOR XR [Suspect]
     Indication: DEPRESSION
     Dosage: OVERDOSE AMOUNT UNKNOWN
     Route: 048
     Dates: start: 20070630, end: 20070630
  2. TEMAZEPAM [Concomitant]
     Dosage: 30 QD
  3. FLEXERIL [Concomitant]
     Dosage: ^5 BID^
  4. BUSPAR [Concomitant]
     Dosage: ^20 TID^
  5. SKELAXIN [Concomitant]
     Dosage: ^800 BID^
  6. TOPROL-XL [Concomitant]
     Dosage: 100 QD
  7. AVINZA [Concomitant]
     Dosage: 120 QD
  8. ACIPHEX [Concomitant]
     Dosage: ^20 QD^
  9. TOPAMAX [Concomitant]
     Dosage: ^100 QD^
  10. KLONOPIN [Concomitant]
  11. NORTRIPTYLINE HCL [Concomitant]
     Dosage: ^100 HS^

REACTIONS (2)
  - ANTIDEPRESSANT DRUG LEVEL INCREASED [None]
  - OVERDOSE [None]
